FAERS Safety Report 12883475 (Version 1)
Quarter: 2016Q4

REPORT INFORMATION
  Report Type: Spontaneous
  Country: US (occurrence: US)
  Receive Date: 20161025
  Receipt Date: 20161025
  Transmission Date: 20170207
  Serious: Yes (Hospitalization)
  Sender: FDA-Public Use
  Company Number: US-ACTELION-A-US2016-144178

PATIENT
  Age: 8 Month
  Sex: Female

DRUGS (2)
  1. TRACLEER [Suspect]
     Active Substance: BOSENTAN
     Indication: PULMONARY HYPERTENSION
     Dosage: 15.625 MG, BID
     Route: 048
  2. ADCIRCA [Concomitant]
     Active Substance: TADALAFIL

REACTIONS (2)
  - Respiratory distress [Unknown]
  - Cardiac operation [Unknown]
